FAERS Safety Report 4031201 (Version 4)
Quarter: 2013Q2

REPORT INFORMATION
  Report Type: Spontaneous
  Country: GB (occurrence: None)
  Receive Date: 20031103
  Receipt Date: 20130501
  Transmission Date: 20140414
  Serious: Yes (Hospitalization, Other)
  Sender: FDA-Public Use
  Company Number: THQ2003A01307

PATIENT
  Age: 49 Year
  Sex: Female

DRUGS (4)
  1. LANSOPRAZOLE [Suspect]
     Indication: EPILEPSY
     Route: 048
  2. LANSOPRAZOLE [Suspect]
     Indication: UNEVALUABLE EVENT
     Route: 048
  3. IBUPROFEN (IBUPROFEN) [Suspect]
     Indication: UNEVALUABLE EVENT
     Dosage: 6 G (1 D)
     Route: 048
  4. CLOZAPINE [Concomitant]

REACTIONS (7)
  - Coordination abnormal [None]
  - DISTURBANCE IN ATTENTION [None]
  - FEELING HOT [None]
  - OVERDOSE [None]
  - SOMNOLENCE [None]
  - HYPERHIDROSIS [None]
  - Sedation [None]
